FAERS Safety Report 8433938-9 (Version None)
Quarter: 2012Q2

REPORT INFORMATION
  Report Type: 
  Country: None (occurrence: None)
  Receive Date: 20120613
  Receipt Date: 20120605
  Transmission Date: 20120825
  Serious: Yes (Hospitalization)
  Sender: FDA-Public Use
  Company Number: FR-ROCHE-1075630

PATIENT
  Age: 49 Year
  Sex: Female

DRUGS (8)
  1. LEXOMIL ROCHE [Concomitant]
  2. ENBREL [Suspect]
     Indication: RHEUMATOID ARTHRITIS
     Route: 058
     Dates: start: 20100416, end: 20101201
  3. LEVOTHYROXINE SODIUM [Concomitant]
  4. MODANE [Concomitant]
  5. VITAMIN D [Concomitant]
  6. MABTHERA [Suspect]
     Indication: RHEUMATOID ARTHRITIS
     Route: 042
     Dates: start: 20081001, end: 20091201
  7. ECONAZOLE NITRATE [Concomitant]
  8. PREDNISONE TAB [Suspect]
     Indication: PRODUCT USED FOR UNKNOWN INDICATION

REACTIONS (3)
  - MENINGORADICULITIS [None]
  - LYMPHOPENIA [None]
  - HERPES ZOSTER [None]
